FAERS Safety Report 12501180 (Version 1)
Quarter: 2016Q2

REPORT INFORMATION
  Report Type: Not Available
  Country: GB (occurrence: GB)
  Receive Date: 20160627
  Receipt Date: 20160627
  Transmission Date: 20160815
  Serious: Yes (Life-Threatening)
  Sender: FDA-Public Use
  Company Number: GB-PURDUE PHARMA-GBR-2016-0037154

PATIENT
  Age: 21 Year
  Sex: Female
  Weight: 58.7 kg

DRUGS (3)
  1. MORPHINE SULFATE. [Suspect]
     Active Substance: MORPHINE SULFATE
     Indication: GENERAL ANAESTHESIA
     Dosage: 10 MG, UNK
     Route: 065
     Dates: start: 20160411, end: 20160411
  2. ATRACURIUM [Suspect]
     Active Substance: ATRACURIUM
     Indication: GENERAL ANAESTHESIA
     Dosage: 25 MG, UNK
     Route: 065
     Dates: start: 20160411, end: 20160411
  3. CEFUROXIME. [Suspect]
     Active Substance: CEFUROXIME
     Indication: GENERAL ANAESTHESIA
     Dosage: 1.5 G, UNK
     Route: 065
     Dates: start: 20160411, end: 20160411

REACTIONS (1)
  - Anaphylactic shock [Recovered/Resolved]

NARRATIVE: CASE EVENT DATE: 20160411
